FAERS Safety Report 7926825-3 (Version None)
Quarter: 2011Q4

REPORT INFORMATION
  Report Type: 
  Country: None (occurrence: None)
  Receive Date: 20111118
  Receipt Date: 20111108
  Transmission Date: 20120403
  Serious: Yes (Other)
  Sender: FDA-Public Use
  Company Number: US-BAYER-201039214NA

PATIENT
  Age: 23 Year
  Sex: Female
  Weight: 63.492 kg

DRUGS (4)
  1. YAZ [Suspect]
     Indication: PRODUCT USED FOR UNKNOWN INDICATION
     Route: 048
     Dates: start: 20070321, end: 20090327
  2. YASMIN [Suspect]
     Indication: PRODUCT USED FOR UNKNOWN INDICATION
     Route: 048
     Dates: start: 20050218, end: 20070321
  3. YASMIN [Suspect]
     Indication: ABDOMINAL PAIN LOWER
  4. YAZ [Suspect]
     Indication: ABDOMINAL PAIN LOWER

REACTIONS (5)
  - ABDOMINAL PAIN [None]
  - CHOLECYSTITIS CHRONIC [None]
  - BILIARY DYSKINESIA [None]
  - CHOLESTEROSIS [None]
  - CHOLECYSTECTOMY [None]
